FAERS Safety Report 21389858 (Version 1)
Quarter: 2022Q3

REPORT INFORMATION
  Report Type: Spontaneous
  Country: CN (occurrence: CN)
  Receive Date: 20220929
  Receipt Date: 20220929
  Transmission Date: 20221027
  Serious: Yes (Other)
  Sender: FDA-Public Use
  Company Number: CN-MLMSERVICE-2022091337909351

PATIENT
  Age: 63 Year
  Sex: Female

DRUGS (4)
  1. CISPLATIN [Suspect]
     Active Substance: CISPLATIN
     Indication: Metastases to lymph nodes
     Dates: start: 201901, end: 2019
  2. DOCETAXEL [Suspect]
     Active Substance: DOCETAXEL
     Indication: Metastases to lymph nodes
     Dates: start: 201901, end: 2019
  3. DOCETAXEL [Suspect]
     Active Substance: DOCETAXEL
     Indication: Thymic cancer metastatic
     Dates: start: 201901, end: 2019
  4. CISPLATIN [Suspect]
     Active Substance: CISPLATIN
     Indication: Metastases to neck
     Dates: start: 201901, end: 2019

REACTIONS (1)
  - Gastrointestinal disorder [Unknown]

NARRATIVE: CASE EVENT DATE: 20190101
